FAERS Safety Report 18156387 (Version 1)
Quarter: 2020Q3

REPORT INFORMATION
  Report Type: Spontaneous
  Country: US (occurrence: US)
  Receive Date: 20200817
  Receipt Date: 20200817
  Transmission Date: 20201103
  Serious: No
  Sender: FDA-Public Use
  Company Number: US-PFIZER INC-2020316848

PATIENT
  Age: 61 Year
  Sex: Female
  Weight: 275.8 kg

DRUGS (19)
  1. IMITREX [Concomitant]
     Active Substance: SUMATRIPTAN SUCCINATE
  2. HYDROCODONE/ACETAMINOPHEN [Concomitant]
     Active Substance: ACETAMINOPHEN\HYDROCODONE
  3. MIRAPEX [Concomitant]
     Active Substance: PRAMIPEXOLE DIHYDROCHLORIDE
  4. EFFEXOR XR [Concomitant]
     Active Substance: VENLAFAXINE HYDROCHLORIDE
  5. TRULICITY [Concomitant]
     Active Substance: DULAGLUTIDE
     Dosage: 1.5 MG/0.5 PEN INJCTR
  6. LIVALO [Concomitant]
     Active Substance: PITAVASTATIN CALCIUM
  7. TRESIBA [Concomitant]
     Active Substance: INSULIN DEGLUDEC
  8. XELJANZ XR [Suspect]
     Active Substance: TOFACITINIB CITRATE
     Indication: RHEUMATOID ARTHRITIS
     Dosage: 11 MG, DAILY
     Route: 048
     Dates: start: 201912
  9. SULFASALAZINE. [Concomitant]
     Active Substance: SULFASALAZINE
  10. GABAPENTIN. [Concomitant]
     Active Substance: GABAPENTIN
  11. PEPCID [Concomitant]
     Active Substance: FAMOTIDINE
  12. REPATHA [Concomitant]
     Active Substance: EVOLOCUMAB
  13. CYCLOBENZAPRINE HYDROCHLORIDE. [Concomitant]
     Active Substance: CYCLOBENZAPRINE HYDROCHLORIDE
  14. LOSARTAN AND HYDROCHLOROTHIAZIDE [Concomitant]
     Active Substance: HYDROCHLOROTHIAZIDE\LOSARTAN POTASSIUM
  15. CLARITIN [CLARITHROMYCIN] [Concomitant]
     Active Substance: CLARITHROMYCIN
  16. ACEBUTOLOL HCL [Concomitant]
     Active Substance: ACEBUTOLOL
  17. GLIMEPIRIDE. [Concomitant]
     Active Substance: GLIMEPIRIDE
  18. PEPCID [Concomitant]
     Active Substance: FAMOTIDINE
  19. PEPCID [Concomitant]
     Active Substance: FAMOTIDINE

REACTIONS (1)
  - Drug ineffective [Unknown]
